FAERS Safety Report 9868934 (Version 2)
Quarter: 2014Q1

REPORT INFORMATION
  Report Type: Report from Study
  Country: US (occurrence: US)
  Receive Date: 20140204
  Receipt Date: 20140204
  Transmission Date: 20141002
  Serious: Yes (Other)
  Sender: FDA-Public Use
  Company Number: PHEH2013US025832

PATIENT
  Age: 4 Year
  Sex: Female
  Weight: 15 kg

DRUGS (14)
  1. TOBI [Suspect]
     Indication: MYASTHENIA GRAVIS
     Dosage: 300 MG, BID
     Route: 055
  2. TOBI [Suspect]
     Indication: PNEUMONIA
  3. BANZEL [Concomitant]
     Dosage: 400 MG, BID
  4. KEPPRA [Concomitant]
     Dosage: 500 MG, BID
  5. ONFI [Concomitant]
     Dosage: 15 MG, BID
  6. DIGOXIN [Concomitant]
     Dosage: 1.7 ML, BID
  7. FLUCONAZOLE [Concomitant]
     Dosage: 200 MG, QD
  8. ALDACTAZIDE [Concomitant]
     Dosage: 15 MG, QD
  9. PULMOZYME [Concomitant]
     Dosage: 2.5 MG, QD
  10. PULMICORT [Concomitant]
     Dosage: 0.5 MG, QD
  11. ALBUTEROL [Concomitant]
     Dosage: 2.5 MG, EVERY 4 HOURS
  12. MIRALAX [Concomitant]
     Dosage: 17 G, QD
  13. MULTIVITAMIN [Concomitant]
     Dosage: UNK UKN, QD
  14. CALCIUM [Concomitant]
     Dosage: UNK UKN, QD

REACTIONS (13)
  - Convulsion [Unknown]
  - Drug administered to patient of inappropriate age [Unknown]
  - Secretion discharge [Unknown]
  - Snoring [Unknown]
  - Heart rate increased [Unknown]
  - Coloboma [Unknown]
  - Nasal turbinate abnormality [Unknown]
  - Hypertonia [Unknown]
  - Moraxella infection [Unknown]
  - Breath sounds abnormal [Unknown]
  - Cough [Unknown]
  - Pyrexia [Unknown]
  - Malaise [Unknown]
